FAERS Safety Report 8539684-5 (Version None)
Quarter: 2012Q3

REPORT INFORMATION
  Report Type: 
  Country: None (occurrence: None)
  Receive Date: 20120726
  Receipt Date: 20110720
  Transmission Date: 20120928
  Serious: No
  Sender: FDA-Public Use
  Company Number: US-ASTRAZENECA-2008UW02424

PATIENT
  Age: 48 Year
  Sex: Male
  Weight: 101.2 kg

DRUGS (31)
  1. SEROQUEL [Suspect]
     Route: 048
     Dates: start: 20070110
  2. SEROQUEL [Suspect]
     Route: 048
     Dates: start: 20070110
  3. HALDOL [Concomitant]
     Dates: start: 19800101
  4. SEROQUEL [Suspect]
     Indication: DEPRESSION
     Dosage: VARIOUS (INCLUDING BUT NOT LIMITED TO 100 MG)
     Route: 048
     Dates: start: 20040201, end: 20070101
  5. ABILIFY [Concomitant]
     Dates: start: 19800101
  6. TRAZODONE HYDROCHLORIDE [Concomitant]
     Route: 048
  7. DOXEPIN [Concomitant]
     Route: 048
  8. LEXAPRO [Concomitant]
     Route: 048
  9. GABITRIL [Concomitant]
     Route: 048
  10. CAMPRAL [Concomitant]
     Route: 048
  11. SEROQUEL [Suspect]
     Indication: INSOMNIA
     Dosage: VARIOUS (INCLUDING BUT NOT LIMITED TO 100 MG)
     Route: 048
     Dates: start: 20040201, end: 20070101
  12. IBUPROFEN [Concomitant]
     Route: 048
  13. NORVASC [Concomitant]
     Route: 048
  14. MOBIC [Concomitant]
     Route: 048
  15. SEROQUEL [Suspect]
     Dosage: 100 MG - 200 MG
     Route: 048
     Dates: start: 20060217
  16. DIOVAN [Concomitant]
     Route: 048
  17. CYCLOBENAZPRINE [Concomitant]
     Route: 065
  18. AMBIEN [Concomitant]
     Route: 048
  19. LISINOPRIL [Concomitant]
     Dates: start: 20070208
  20. CAMPRAL [Concomitant]
     Dates: start: 20070201
  21. THORAZINE [Concomitant]
     Dates: start: 19800101
  22. PAXIL [Concomitant]
     Dates: start: 20040101
  23. DEPAKOTE [Concomitant]
     Route: 048
  24. HYDROCODONE BITARTRATE AND ACETAMINOPHEN [Concomitant]
     Dosage: 5 MG/ 500 MG
     Route: 048
  25. LUNESTA [Concomitant]
     Dates: start: 20070301
  26. TEMAZEPAM [Concomitant]
     Route: 048
  27. SEROQUEL [Suspect]
     Dosage: 100 MG - 200 MG
     Route: 048
     Dates: start: 20060217
  28. ABILIFY [Concomitant]
     Dosage: 10 MG - 15 MG
     Route: 048
  29. CIPROFLOXACIN [Concomitant]
     Route: 048
  30. LUNESTA [Concomitant]
     Dosage: 2 MG - 3 MG
     Route: 048
  31. LISINOPRIL [Concomitant]
     Route: 048

REACTIONS (11)
  - SCHIZOPHRENIA, PARANOID TYPE [None]
  - ADVERSE DRUG REACTION [None]
  - ABDOMINAL HERNIA [None]
  - HERNIA [None]
  - LIVER DISORDER [None]
  - HEPATITIS B [None]
  - HEPATITIS C [None]
  - IRRITABILITY [None]
  - DIARRHOEA [None]
  - TYPE 2 DIABETES MELLITUS [None]
  - ANXIETY [None]
